FAERS Safety Report 6804867-9 (Version None)
Quarter: 2010Q2

REPORT INFORMATION
  Report Type: 
  Country: None (occurrence: None)
  Receive Date: 20100628
  Receipt Date: 20070619
  Transmission Date: 20101027
  Serious: Yes (Hospitalization)
  Sender: FDA-Public Use
  Company Number: US-PFIZER INC-2007051519

PATIENT
  Sex: Female

DRUGS (3)
  1. CADUET [Suspect]
     Dosage: 2.5/10 MG
  2. TENORMIN [Concomitant]
  3. PRAVASTATIN [Concomitant]

REACTIONS (1)
  - TACHYCARDIA [None]
